FAERS Safety Report 8087701-1 (Version None)
Quarter: 2012Q1

REPORT INFORMATION
  Report Type: 
  Country: None (occurrence: None)
  Receive Date: 20120128
  Receipt Date: 20110421
  Transmission Date: 20120608
  Serious: No
  Sender: FDA-Public Use
  Company Number: US-ABBOTT-11P-163-0720983-00

PATIENT
  Age: 75 Year
  Sex: Female

DRUGS (5)
  1. PREDNISONE TAB [Concomitant]
     Indication: ARTHRALGIA
     Dosage: DAILY, STARTED PRIOR TO HUMIRA
     Route: 048
  2. LISINOPRIL [Concomitant]
     Indication: HYPERTENSION
     Dosage: STARTED BEFORE HUMIRA, CANNOT REMEMBER YEAR
     Route: 048
  3. PROTONIX [Concomitant]
     Indication: OESOPHAGEAL DISORDER
     Dosage: TAKEN FOR 5-6 YEARS
  4. HUMIRA [Suspect]
     Indication: PSORIATIC ARTHROPATHY
     Dates: start: 20080101
  5. LIPITOR [Concomitant]
     Indication: BLOOD CHOLESTEROL INCREASED
     Dosage: HAS TAKEN FOR THE PAST 4-5 YEARS
     Route: 048

REACTIONS (4)
  - LACERATION [None]
  - GASTROOESOPHAGEAL REFLUX DISEASE [None]
  - SUTURE INSERTION [None]
  - CHEST PAIN [None]
